FAERS Safety Report 9670827 (Version 1)
Quarter: 2013Q4

REPORT INFORMATION
  Report Type: Spontaneous
  Country: SE (occurrence: SE)
  Receive Date: 20131106
  Receipt Date: 20131106
  Transmission Date: 20140711
  Serious: Yes (Life-Threatening)
  Sender: FDA-Public Use
  Company Number: SE-JNJFOC-20131019302

PATIENT
  Age: 64 Year
  Sex: Female

DRUGS (3)
  1. XARELTO [Suspect]
     Indication: DEEP VEIN THROMBOSIS
     Route: 048
     Dates: start: 20130904, end: 20130925
  2. RAMIPRIL [Concomitant]
     Route: 065
  3. BEHEPAN [Concomitant]
     Route: 065

REACTIONS (1)
  - Venous thrombosis limb [Not Recovered/Not Resolved]
